FAERS Safety Report 14535983 (Version 1)
Quarter: 2018Q1

REPORT INFORMATION
  Report Type: Spontaneous
  Country: US (occurrence: US)
  Receive Date: 20180215
  Receipt Date: 20180215
  Transmission Date: 20180509
  Serious: No
  Sender: FDA-Public Use
  Company Number: US-RADIUS HEALTH INC.-2017US000413

PATIENT
  Age: 65 Year
  Sex: Female
  Weight: 46 kg

DRUGS (3)
  1. TYMLOS [Suspect]
     Active Substance: ABALOPARATIDE
     Indication: OSTEOPOROSIS POSTMENOPAUSAL
     Dosage: 80 MCG, ONCE DAILY
     Route: 058
     Dates: start: 20171223
  2. SOTALOL. [Concomitant]
     Active Substance: SOTALOL
     Indication: PRODUCT USED FOR UNKNOWN INDICATION
     Dosage: 40 MG,QD
  3. DIGOXIN. [Concomitant]
     Active Substance: DIGOXIN
     Indication: PRODUCT USED FOR UNKNOWN INDICATION
     Dosage: 1 TAB DAILY

REACTIONS (2)
  - Product quality issue [Unknown]
  - Drug dose omission [Unknown]

NARRATIVE: CASE EVENT DATE: 20171228
